FAERS Safety Report 5691900-3 (Version None)
Quarter: 2008Q2

REPORT INFORMATION
  Report Type: 
  Country: None (occurrence: None)
  Receive Date: 20080402
  Receipt Date: 20080328
  Transmission Date: 20081010
  Serious: Yes (Other)
  Sender: FDA-Public Use
  Company Number: US-BRISTOL-MYERS SQUIBB COMPANY-14131841

PATIENT
  Sex: Female

DRUGS (3)
  1. ABILIFY [Suspect]
  2. PHENOBARBITAL TAB [Interacting]
     Indication: EPILEPSY
  3. DILANTIN [Interacting]
     Indication: EPILEPSY

REACTIONS (2)
  - CONVULSION [None]
  - DRUG INTERACTION [None]
